FAERS Safety Report 9947538 (Version 1)
Quarter: 2014Q1

REPORT INFORMATION
  Report Type: Spontaneous
  Country: US (occurrence: US)
  Receive Date: 20140303
  Receipt Date: 20140303
  Transmission Date: 20141002
  Serious: No
  Sender: FDA-Public Use
  Company Number: US-ABBVIE-13P-163-1058765-00

PATIENT
  Sex: Female
  Weight: 83.54 kg

DRUGS (6)
  1. HUMIRA [Suspect]
     Indication: PSORIASIS
     Dates: start: 200504, end: 200507
  2. HUMIRA [Suspect]
     Indication: RHEUMATOID ARTHRITIS
  3. ENBREL [Suspect]
     Indication: RHEUMATOID ARTHRITIS
     Dates: start: 200508, end: 2013
  4. ENBREL [Suspect]
     Indication: PSORIASIS
  5. LEVOTHYROXINE [Concomitant]
     Indication: HYPOTHYROIDISM
  6. CEFTIN [Concomitant]
     Indication: PSORIASIS

REACTIONS (1)
  - Pustular psoriasis [Recovering/Resolving]
